FAERS Safety Report 22660075 (Version 1)
Quarter: 2023Q2

REPORT INFORMATION
  Report Type: Spontaneous
  Country: CA (occurrence: CA)
  Receive Date: 20230630
  Receipt Date: 20230630
  Transmission Date: 20230722
  Serious: Yes (Other)
  Sender: FDA-Public Use
  Company Number: CA-002147023-NVSC2021CA234164

PATIENT
  Age: 18 Year
  Sex: Female
  Weight: 71.5 kg

DRUGS (12)
  1. TACROLIMUS [Suspect]
     Active Substance: TACROLIMUS
     Indication: Dermatitis atopic
     Dosage: 1 DOSAGE FORM, QD
     Route: 061
     Dates: start: 20200923
  2. TACROLIMUS [Suspect]
     Active Substance: TACROLIMUS
     Dosage: 1 DOSAGE FORM, QD
     Route: 061
     Dates: start: 20210201, end: 20210628
  3. VYVANSE [Concomitant]
     Active Substance: LISDEXAMFETAMINE DIMESYLATE
     Indication: Attention deficit hyperactivity disorder
     Dosage: 30 MG, QD
     Route: 048
     Dates: start: 201801
  4. VENTOLIN [Concomitant]
     Active Substance: ALBUTEROL SULFATE
     Indication: Asthma
     Dosage: 100 MCG AS REQUIRED
     Dates: start: 201307
  5. ALBUTEROL [Concomitant]
     Active Substance: ALBUTEROL
     Indication: Asthma
     Dosage: 100 MCG AS REQUIRED
     Dates: start: 201401
  6. DYMISTA [Concomitant]
     Active Substance: AZELASTINE HYDROCHLORIDE\FLUTICASONE PROPIONATE
     Indication: Seasonal allergy
     Dosage: 1 DOSAGE FORM AS REQUIRED
     Route: 045
     Dates: start: 201712
  7. VASELINE PURE [Concomitant]
     Active Substance: PETROLATUM
     Indication: Dermatitis contact
     Dosage: 1 DF, BID
     Route: 061
  8. ZENHALE [Concomitant]
     Active Substance: FORMOTEROL FUMARATE\MOMETASONE FUROATE
     Indication: Asthma
     Dosage: 1 DF AS REQUITRED
     Dates: start: 20201214
  9. POLYSPORIN [Concomitant]
     Active Substance: BACITRACIN ZINC\POLYMYXIN B SULFATE
     Indication: Dermatillomania
     Dosage: 1 DF, BID
     Route: 061
     Dates: start: 20210421
  10. BENZAC W [Concomitant]
     Indication: Acne
     Dosage: 1 DF, 2-3 TIMES PER WEEK
     Route: 061
     Dates: start: 20210628
  11. BENZAC [Concomitant]
     Indication: Acne
     Dosage: UNK (2 TO 3 TIMES PER WEEK)
     Route: 061
     Dates: start: 20210628
  12. BETAMETHASONE VALERATE [Concomitant]
     Active Substance: BETAMETHASONE VALERATE
     Indication: Product used for unknown indication
     Dosage: 1 % (5 TIMES PER DAY)
     Route: 061
     Dates: start: 20201015

REACTIONS (3)
  - Eczema herpeticum [Recovered/Resolved]
  - Oral herpes [Unknown]
  - Product use in unapproved indication [Unknown]

NARRATIVE: CASE EVENT DATE: 20201229
